FAERS Safety Report 8569225-8 (Version None)
Quarter: 2012Q3

REPORT INFORMATION
  Report Type: 
  Country: None (occurrence: None)
  Receive Date: 20120803
  Receipt Date: 20120202
  Transmission Date: 20120928
  Serious: No
  Sender: FDA-Public Use
  Company Number: US-ABBOTT-12P-163-0901242-00

PATIENT
  Weight: 74.91 kg

DRUGS (8)
  1. NIASPAN [Suspect]
     Dates: start: 20111001
  2. GLIPIZIDE [Concomitant]
     Indication: DIABETES MELLITUS
  3. AVODART [Concomitant]
     Indication: PROSTATOMEGALY
  4. LOVASTATIN [Concomitant]
     Indication: BLOOD CHOLESTEROL INCREASED
  5. NIASPAN [Suspect]
     Indication: BLOOD CHOLESTEROL INCREASED
     Dates: start: 20090101, end: 20111001
  6. PREVACID [Concomitant]
     Indication: GASTROOESOPHAGEAL REFLUX DISEASE
  7. LEVOTHYROXINE SODIUM [Concomitant]
     Indication: THYROID DISORDER
  8. ATENOLOL [Concomitant]
     Indication: HYPERTENSION

REACTIONS (5)
  - GLOSSODYNIA [None]
  - ORAL PAIN [None]
  - LIP PAIN [None]
  - STOMATITIS [None]
  - FLUSHING [None]
